FAERS Safety Report 14267958 (Version 1)
Quarter: 2017Q4

REPORT INFORMATION
  Report Type: Spontaneous
  Country: US (occurrence: US)
  Receive Date: 20171211
  Receipt Date: 20171211
  Transmission Date: 20180321
  Serious: No
  Sender: FDA-Public Use
  Company Number: PHHY2017US184034

PATIENT
  Age: 55 Year
  Sex: Female

DRUGS (1)
  1. MIOSTAT [Suspect]
     Active Substance: CARBACHOL
     Indication: INTRAOPERATIVE CARE
     Route: 047

REACTIONS (1)
  - Miosis [Unknown]
